FAERS Safety Report 25499065 (Version 2)
Quarter: 2025Q3

REPORT INFORMATION
  Report Type: Report from Study
  Country: PE (occurrence: PE)
  Receive Date: 20250701
  Receipt Date: 20250721
  Transmission Date: 20251021
  Serious: Yes (Hospitalization, Disabling, Other)
  Sender: ROCHE
  Company Number: PE-ROCHE-10000325174

PATIENT
  Age: 77 Year
  Sex: Female
  Weight: 49 kg

DRUGS (1)
  1. MABTHERA [Suspect]
     Active Substance: RITUXIMAB
     Indication: Diffuse large B-cell lymphoma
     Route: 042
     Dates: start: 20250605

REACTIONS (5)
  - Oxygen saturation decreased [Recovered/Resolved]
  - Gait inability [Unknown]
  - Platelet count decreased [Unknown]
  - Pyrexia [Unknown]
  - Diverticulitis [Unknown]
